FAERS Safety Report 15311210 (Version 1)
Quarter: 2018Q3

REPORT INFORMATION
  Report Type: Spontaneous
  Country: US (occurrence: US)
  Receive Date: 20180823
  Receipt Date: 20180823
  Transmission Date: 20181010
  Serious: No
  Sender: FDA-Public Use
  Company Number: US-BAYER-2018-154115

PATIENT
  Age: 41 Year

DRUGS (3)
  1. ALEVE [Suspect]
     Active Substance: NAPROXEN SODIUM
     Dosage: UNK
  2. DICLOFENAC SODIUM. [Concomitant]
     Active Substance: DICLOFENAC SODIUM
  3. LYRICA [Concomitant]
     Active Substance: PREGABALIN
     Dosage: 150 MG, BID
     Route: 048

REACTIONS (2)
  - Abdominal discomfort [Unknown]
  - Hypersensitivity [Unknown]
